FAERS Safety Report 4445150-9 (Version None)
Quarter: 2004Q3

REPORT INFORMATION
  Report Type: 
  Country: None (occurrence: None)
  Receive Date: 20040907
  Receipt Date: 20040825
  Transmission Date: 20050211
  Serious: No
  Sender: FDA-Public Use
  Company Number: ZONI002017

PATIENT
  Age: 39 Year
  Sex: Female

DRUGS (1)
  1. ZONEGRAN [Suspect]
     Dosage: 200 MG, 2 IN 1 D, ORAL
     Route: 048
     Dates: start: 20030101, end: 20030301

REACTIONS (9)
  - EOSINOPHILIA [None]
  - ERYTHEMA [None]
  - HEPATIC FUNCTION ABNORMAL [None]
  - HUMAN HERPES VIRUS 6 SEROLOGY POSITIVE [None]
  - HYPERSENSITIVITY [None]
  - LYMPHADENOPATHY [None]
  - PNEUMONIA [None]
  - PYREXIA [None]
  - SPLENOMEGALY [None]
